FAERS Safety Report 6193468-4 (Version None)
Quarter: 2009Q2

REPORT INFORMATION
  Report Type: 
  Country: None (occurrence: None)
  Receive Date: 20090514
  Receipt Date: 20090514
  Transmission Date: 20091009
  Serious: Yes (Other)
  Sender: FDA-Public Use
  Company Number: None

PATIENT
  Sex: Female
  Weight: 69.8539 kg

DRUGS (1)
  1. CLONAZEPAM [Suspect]
     Indication: MIGRAINE
     Dosage: 1 PILL TWICE A DAY
     Dates: start: 20080101, end: 20090513

REACTIONS (9)
  - ABNORMAL BEHAVIOUR [None]
  - CONTUSION [None]
  - COORDINATION ABNORMAL [None]
  - DIZZINESS [None]
  - MYALGIA [None]
  - PALPITATIONS [None]
  - SALIVARY HYPERSECRETION [None]
  - VISION BLURRED [None]
  - WEIGHT ABNORMAL [None]
